FAERS Safety Report 19206075 (Version 1)
Quarter: 2021Q2

REPORT INFORMATION
  Report Type: Spontaneous
  Country: DE (occurrence: DE)
  Receive Date: 20210503
  Receipt Date: 20210503
  Transmission Date: 20210717
  Serious: Yes (Other)
  Sender: FDA-Public Use
  Company Number: DE-PFIZER INC-2021442735

PATIENT

DRUGS (1)
  1. CYTOTEC [Suspect]
     Active Substance: MISOPROSTOL
     Indication: LABOUR INDUCTION
     Dosage: 3 DF, AS NEEDED, 31 PREGNANCY WEEK
     Route: 064
     Dates: start: 20210415

REACTIONS (2)
  - Neonatal asphyxia [Not Recovered/Not Resolved]
  - Foetal exposure during delivery [Unknown]

NARRATIVE: CASE EVENT DATE: 20210416
